FAERS Safety Report 6330523-X (Version None)
Quarter: 2009Q3

REPORT INFORMATION
  Report Type: 
  Country: None (occurrence: None)
  Receive Date: 20090827
  Receipt Date: 20080703
  Transmission Date: 20100115
  Serious: No
  Sender: FDA-Public Use
  Company Number: A0737057A

PATIENT
  Sex: Female

DRUGS (2)
  1. ZOVIRAX [Suspect]
     Route: 061
  2. CONCURRENT MEDICATIONS [Concomitant]

REACTIONS (2)
  - ILL-DEFINED DISORDER [None]
  - NAUSEA [None]
